FAERS Safety Report 13441543 (Version 1)
Quarter: 2017Q2

REPORT INFORMATION
  Report Type: Report from Study
  Country: FR (occurrence: FR)
  Receive Date: 20170413
  Receipt Date: 20170413
  Transmission Date: 20170830
  Serious: Yes (Other)
  Sender: FDA-Public Use
  Company Number: FR-ROCHE-1918304

PATIENT

DRUGS (3)
  1. PREDNISONE. [Suspect]
     Active Substance: PREDNISONE
     Indication: PEMPHIGUS
     Route: 048
  2. RITUXIMAB [Suspect]
     Active Substance: RITUXIMAB
     Indication: PEMPHIGUS
     Route: 042
  3. RITUXIMAB [Suspect]
     Active Substance: RITUXIMAB
     Route: 042

REACTIONS (15)
  - Pulmonary embolism [Unknown]
  - Skin atrophy [Unknown]
  - Wrist fracture [Unknown]
  - Pneumonia [Unknown]
  - Femur fracture [Unknown]
  - Spinal fracture [Unknown]
  - Sepsis [Unknown]
  - Cardiac failure [Unknown]
  - Depression [Unknown]
  - Rotator cuff syndrome [Unknown]
  - Myopathy [Unknown]
  - Hepatocellular injury [Unknown]
  - Intervertebral discitis [Unknown]
  - Deep vein thrombosis [Unknown]
  - Cushing^s syndrome [Unknown]
